FAERS Safety Report 10670457 (Version 1)
Quarter: 2014Q4

REPORT INFORMATION
  Report Type: Spontaneous
  Country: US (occurrence: US)
  Receive Date: 20141223
  Receipt Date: 20141223
  Transmission Date: 20150529
  Serious: Yes (Other)
  Sender: FDA-Public Use
  Company Number: US-ELI_LILLY_AND_COMPANY-US201412007658

PATIENT
  Sex: Female

DRUGS (3)
  1. LEVEMIR [Concomitant]
     Active Substance: INSULIN DETEMIR
  2. HUMULIN N [Suspect]
     Active Substance: INSULIN HUMAN
     Indication: DIABETES MELLITUS
     Dosage: UNK
     Route: 065
  3. GLUCOTROL [Concomitant]
     Active Substance: GLIPIZIDE

REACTIONS (4)
  - Diabetic eye disease [Unknown]
  - Neuropathy peripheral [Unknown]
  - Blood glucose fluctuation [Unknown]
  - Eye haemorrhage [Unknown]
